FAERS Safety Report 6368308-0 (Version None)
Quarter: 2009Q3

REPORT INFORMATION
  Report Type: 
  Country: None (occurrence: None)
  Receive Date: 20090922
  Receipt Date: 20090915
  Transmission Date: 20100115
  Serious: Yes (Hospitalization, Other)
  Sender: FDA-Public Use
  Company Number: US-KINGPHARMUSA00001-K200900610

PATIENT
  Age: 56 Year
  Sex: Female

DRUGS (10)
  1. ALTACE [Suspect]
     Indication: HYPERTENSION
     Dosage: 5 MG, QD
     Route: 048
     Dates: start: 20090415, end: 20090516
  2. ALTACE [Suspect]
     Indication: FLUID RETENTION
  3. HYDROCHLOROTHIAZIDE [Suspect]
     Indication: HYPERTENSION
     Dosage: 25 MG, QD
     Route: 048
     Dates: start: 20090415, end: 20090516
  4. HYDROCHLOROTHIAZIDE [Suspect]
     Indication: FLUID RETENTION
  5. MESTINON [Concomitant]
     Indication: MYASTHENIA GRAVIS
     Dosage: 540 MG, UNK
     Route: 048
     Dates: start: 19670101
  6. URBASON [Concomitant]
     Indication: MYASTHENIA GRAVIS
     Dosage: UNK %, UNK
     Route: 048
     Dates: start: 19850101
  7. URBASON [Concomitant]
     Indication: ADRENAL ATROPHY
  8. OMEP [Concomitant]
     Indication: GASTRIC DISORDER
     Dosage: 40 MG, QD
     Route: 048
     Dates: start: 19850101
  9. ACTONEL [Concomitant]
     Indication: OSTEOPOROSIS
     Dosage: 35 MG, QW
     Route: 048
     Dates: start: 19850101
  10. LYRICA [Concomitant]
     Indication: MUSCULAR WEAKNESS
     Dosage: 50 MG, UNK
     Route: 048
     Dates: start: 20090501

REACTIONS (5)
  - ANGIOEDEMA [None]
  - DEPRESSED LEVEL OF CONSCIOUSNESS [None]
  - LARYNGEAL OEDEMA [None]
  - PULMONARY OEDEMA [None]
  - RESPIRATORY DISORDER [None]
